FAERS Safety Report 17043359 (Version 3)
Quarter: 2022Q3

REPORT INFORMATION
  Report Type: Spontaneous
  Country: US (occurrence: US)
  Receive Date: 20191118
  Receipt Date: 20220712
  Transmission Date: 20221027
  Serious: Yes (Other)
  Sender: FDA-Public Use
  Company Number: US-PFIZER INC-2019494116

PATIENT
  Age: 61 Year
  Sex: Female

DRUGS (2)
  1. IBRANCE [Suspect]
     Active Substance: PALBOCICLIB
     Indication: Breast cancer metastatic
     Dosage: 100 MG
     Dates: start: 201508
  2. LETROZOLE [Suspect]
     Active Substance: LETROZOLE
     Indication: Breast cancer metastatic
     Dosage: UNK
     Dates: start: 201508

REACTIONS (7)
  - Neuropathy peripheral [Unknown]
  - Diabetes mellitus [Unknown]
  - Back pain [Unknown]
  - Nasal disorder [Not Recovered/Not Resolved]
  - Alopecia [Unknown]
  - Neoplasm progression [Unknown]
  - Tumour marker increased [Unknown]
